FAERS Safety Report 6874488-0 (Version None)
Quarter: 2010Q3

REPORT INFORMATION
  Report Type: 
  Country: None (occurrence: None)
  Receive Date: 20100723
  Receipt Date: 20100723
  Transmission Date: 20110219
  Serious: Yes (Other)
  Sender: FDA-Public Use
  Company Number: None

PATIENT
  Age: 51 Year
  Sex: Female
  Weight: 85.7298 kg

DRUGS (8)
  1. JANUVIA [Suspect]
     Indication: DIABETES MELLITUS
     Dosage: 1/T
     Dates: start: 20091010, end: 20100412
  2. AVANDIA [Concomitant]
  3. GLYBURIDE [Concomitant]
  4. METFORMIN HCL [Concomitant]
  5. ZOCOR [Concomitant]
  6. LISINOPRIL [Concomitant]
  7. METFORMIN HCL [Concomitant]
  8. ASPIRIN [Concomitant]

REACTIONS (3)
  - BLISTER [None]
  - CELLULITIS [None]
  - LEUKOCYTOCLASTIC VASCULITIS [None]
